FAERS Safety Report 12986647 (Version 1)
Quarter: 2016Q4

REPORT INFORMATION
  Report Type: Spontaneous
  Country: US (occurrence: US)
  Receive Date: 20161129
  Receipt Date: 20161129
  Transmission Date: 20170207
  Serious: No
  Sender: FDA-Public Use
  Company Number: None

PATIENT
  Age: 34 Year
  Sex: Male
  Weight: 73 kg

DRUGS (3)
  1. LOPERAMIDE [Concomitant]
     Active Substance: LOPERAMIDE
  2. DESCOVY (TAF - FTC) [Concomitant]
  3. PREZCOBIX [Suspect]
     Active Substance: COBICISTAT\DARUNAVIR ETHANOLATE
     Indication: HIV INFECTION
     Route: 048
     Dates: start: 20161021, end: 20161125

REACTIONS (5)
  - Middle insomnia [None]
  - Dyskinesia [None]
  - Muscle twitching [None]
  - Myalgia [None]
  - Pruritus [None]

NARRATIVE: CASE EVENT DATE: 20161129
